FAERS Safety Report 5802877-1 (Version None)
Quarter: 2008Q3

REPORT INFORMATION
  Report Type: 
  Country: None (occurrence: None)
  Receive Date: 20080703
  Receipt Date: 20080620
  Transmission Date: 20090109
  Serious: Yes (Death)
  Sender: FDA-Public Use
  Company Number: A-NJ2008-20915

PATIENT
  Age: 45 Year
  Sex: Female

DRUGS (2)
  1. VENTAVIS [Suspect]
     Indication: PULMONARY HYPERTENSION
     Dosage: RESPIRATORY
     Route: 055
     Dates: start: 20080109
  2. REVATIO (SLDENAFIL CITRATE) [Concomitant]

REACTIONS (1)
  - DEATH [None]
